FAERS Safety Report 7515297-9 (Version None)
Quarter: 2011Q2

REPORT INFORMATION
  Report Type: 
  Country: None (occurrence: None)
  Receive Date: 20110601
  Receipt Date: 20110524
  Transmission Date: 20111010
  Serious: Yes (Other)
  Sender: FDA-Public Use
  Company Number: PHHY2011US26467

PATIENT
  Sex: Female

DRUGS (2)
  1. GILENYA [Suspect]
     Indication: MULTIPLE SCLEROSIS
     Dosage: 0.5 MG, QD
     Route: 048
     Dates: start: 20110215
  2. PROZAC [Concomitant]
     Dosage: 60 MG DAILY

REACTIONS (7)
  - FATIGUE [None]
  - BRONCHITIS [None]
  - WHITE BLOOD CELL COUNT DECREASED [None]
  - INCREASED BRONCHIAL SECRETION [None]
  - DEPRESSION [None]
  - COUGH [None]
  - EYE INFECTION [None]
